FAERS Safety Report 7056399-3 (Version None)
Quarter: 2010Q4

REPORT INFORMATION
  Report Type: 
  Country: None (occurrence: None)
  Receive Date: 20101021
  Receipt Date: 20101014
  Transmission Date: 20110411
  Serious: Yes (Hospitalization)
  Sender: FDA-Public Use
  Company Number: US-US-EMD SERONO, INC.-7022544

PATIENT
  Sex: Female
  Weight: 88 kg

DRUGS (6)
  1. REBIF [Suspect]
     Indication: MULTIPLE SCLEROSIS
     Route: 058
     Dates: start: 20081111, end: 20100801
  2. REBIF [Suspect]
     Route: 058
     Dates: start: 20101001
  3. KEPPRA [Concomitant]
     Indication: GRAND MAL CONVULSION
     Dates: start: 20020101
  4. PREVACID [Concomitant]
     Indication: GASTROOESOPHAGEAL REFLUX DISEASE
  5. DETROL LA [Concomitant]
     Indication: BLADDER DISORDER
  6. LEXAPRO [Concomitant]
     Indication: DEPRESSION
     Dates: start: 20030101

REACTIONS (3)
  - DIVERTICULITIS [None]
  - HYPOTENSION [None]
  - WEIGHT DECREASED [None]
